FAERS Safety Report 10482233 (Version 22)
Quarter: 2015Q3

REPORT INFORMATION
  Report Type: Report from Study
  Country: JP (occurrence: JP)
  Receive Date: 20140929
  Receipt Date: 20150723
  Transmission Date: 20151125
  Serious: Yes (Hospitalization)
  Sender: FDA-Public Use
  Company Number: JP-MERCK-1407JPN013025

PATIENT
  Age: 75 Year
  Sex: Male
  Weight: 53.2 kg

DRUGS (11)
  1. OLMETEC [Concomitant]
     Active Substance: OLMESARTAN MEDOXOMIL
     Indication: HYPERTENSION
     Dosage: 20 MG, QD
     Route: 048
     Dates: start: 20131111, end: 20141017
  2. METGLUCO [Concomitant]
     Active Substance: METFORMIN HYDROCHLORIDE
     Indication: DIABETES MELLITUS
     Dosage: TOTAL DAILY DOSE: 750 MG, TID
     Route: 048
     Dates: start: 20131212
  3. JANUVIA [Concomitant]
     Active Substance: SITAGLIPTIN PHOSPHATE
     Indication: DIABETES MELLITUS
     Dosage: 50 MG, QD
     Route: 048
     Dates: start: 20140210
  4. NAIXAN [Concomitant]
     Active Substance: NAPROXEN SODIUM
     Indication: HYPERTHERMIA MALIGNANT
     Dosage: TOTAL DAILY DOSE: 300 MG, TID
     Route: 048
     Dates: start: 20140331
  5. PEMBROLIZUMAB. [Suspect]
     Active Substance: PEMBROLIZUMAB
     Indication: NON-SMALL CELL LUNG CANCER
     Dosage: 10 MG/KG, Q3W
     Route: 042
     Dates: start: 20140710, end: 20140710
  6. LENDORMIN D [Concomitant]
     Active Substance: BROTIZOLAM
     Indication: INSOMNIA
     Dosage: 0.25 MG, QD
     Route: 048
     Dates: start: 20140331, end: 20140731
  7. CODEINE PHOSPHATE [Concomitant]
     Active Substance: CODEINE PHOSPHATE
     Indication: LUNG NEOPLASM MALIGNANT
     Dosage: TOTAL DAILY DOSE: 15 MG, TID
     Route: 048
     Dates: start: 20140122
  8. NEXIUM [Concomitant]
     Active Substance: ESOMEPRAZOLE MAGNESIUM
     Indication: PROPHYLAXIS
     Dosage: TOTAL DAILY DOSE 20 MG, TID
     Route: 048
     Dates: start: 20131212
  9. PRIMPERAN [Concomitant]
     Active Substance: METOCLOPRAMIDE HYDROCHLORIDE
     Indication: PROPHYLAXIS
     Dosage: TOTAL DAILY DOSE: 15 MG, TID
     Route: 048
     Dates: start: 20140507, end: 20141017
  10. HIRUDOID SOFT [Concomitant]
     Indication: DRY SKIN
     Dosage: TOTAL DAILY DOSE: 1 APPLICATION, PRN
     Route: 061
     Dates: start: 20140721
  11. AMLODIN (AMLODIPINE BESYLATE) [Concomitant]
     Active Substance: AMLODIPINE BESYLATE
     Indication: HYPERTENSION
     Dosage: 2.5 MG, QD
     Route: 048
     Dates: start: 20131111, end: 20140803

REACTIONS (1)
  - Interstitial lung disease [Recovered/Resolved]

NARRATIVE: CASE EVENT DATE: 20140725
